FAERS Safety Report 4471247-3 (Version None)
Quarter: 2004Q4

REPORT INFORMATION
  Report Type: 
  Country: None (occurrence: None)
  Receive Date: 20041011
  Receipt Date: 20041004
  Transmission Date: 20050328
  Serious: Yes (Disabling)
  Sender: FDA-Public Use
  Company Number: DE-MERCK-0410DEU00106

PATIENT
  Age: 71 Year
  Sex: Female

DRUGS (1)
  1. VIOXX [Suspect]
     Route: 048
     Dates: start: 20030101

REACTIONS (1)
  - CEREBROVASCULAR ACCIDENT [None]
